FAERS Safety Report 25541883 (Version 1)
Quarter: 2025Q3

REPORT INFORMATION
  Report Type: Spontaneous
  Country: PE (occurrence: PE)
  Receive Date: 20250711
  Receipt Date: 20250711
  Transmission Date: 20251021
  Serious: Yes (Other)
  Sender: ORGANON
  Company Number: PE-ORGANON-O2507PER000836

PATIENT
  Sex: Female

DRUGS (1)
  1. NEXPLANON [Suspect]
     Active Substance: ETONOGESTREL
     Route: 059

REACTIONS (4)
  - Haemoglobin decreased [Unknown]
  - Palpitations [Unknown]
  - Illness [Unknown]
  - Chest pain [Unknown]
